FAERS Safety Report 5753586-9 (Version None)
Quarter: 2008Q2

REPORT INFORMATION
  Report Type: 
  Country: None (occurrence: None)
  Receive Date: 20080530
  Receipt Date: 20080515
  Transmission Date: 20081010
  Serious: Yes (Other)
  Sender: FDA-Public Use
  Company Number: US-JNJFOC-20080504175

PATIENT
  Age: 76 Year
  Sex: Female
  Weight: 50.8 kg

DRUGS (3)
  1. EXTRA STRENGTH TYLENOL [Suspect]
     Route: 048
  2. EXTRA STRENGTH TYLENOL [Suspect]
     Indication: ARTHRALGIA
     Dosage: 4 HOURS APART
     Route: 048
  3. HYZAAR [Concomitant]
     Indication: HYPERTENSION

REACTIONS (2)
  - BLOOD URINE PRESENT [None]
  - DRUG INEFFECTIVE [None]
